FAERS Safety Report 11226263 (Version 1)
Quarter: 2015Q2

REPORT INFORMATION
  Report Type: Other
  Country: GB (occurrence: GB)
  Receive Date: 20150629
  Receipt Date: 20150629
  Transmission Date: 20150821
  Serious: Yes (Hospitalization)
  Sender: FDA-Public Use
  Company Number: GB-MYLANLABS-2015M1020478

PATIENT

DRUGS (8)
  1. PRIADEL [Suspect]
     Active Substance: LITHIUM CARBONATE
     Dosage: 300 MG, QD (TAKE IN THE MORNING.)
  2. ASPIRIN                            /00002701/ [Concomitant]
     Active Substance: ASPIRIN
     Dosage: 75 MG, QD (TAKE IN THE MORNING)
  3. LORAZEPAM. [Concomitant]
     Active Substance: LORAZEPAM
     Dosage: 0.5 MG, QID
  4. FUROSEMIDE. [Suspect]
     Active Substance: FUROSEMIDE
     Dosage: 20 MG, QD (TAKE IN THE MORNING).
  5. ACEBUTOLOL [Concomitant]
     Active Substance: ACEBUTOLOL
     Dosage: 100 MG, QD (TAKE IN THE MORNING).
  6. MULTIVITAMIN                       /00097801/ [Concomitant]
     Active Substance: VITAMINS
     Dosage: 1 DF, BID
  7. ATORVASTATIN [Concomitant]
     Active Substance: ATORVASTATIN
     Dosage: 20 MG, QD (TAKE AT NIGHT)
  8. RISPERIDONE. [Concomitant]
     Active Substance: RISPERIDONE
     Dosage: 1 MG, BID

REACTIONS (4)
  - Hypophagia [Unknown]
  - Agitation [Unknown]
  - Tremor [Unknown]
  - Toxicity to various agents [Recovering/Resolving]
